FAERS Safety Report 5032756-1 (Version None)
Quarter: 2006Q2

REPORT INFORMATION
  Report Type: 
  Country: None (occurrence: None)
  Receive Date: 20060515
  Receipt Date: 20060206
  Transmission Date: 20061013
  Serious: No
  Sender: FDA-Public Use
  Company Number: S06-USA-00453-01

PATIENT
  Age: 83 Year
  Sex: Female

DRUGS (13)
  1. NAMENDA [Suspect]
     Indication: DEMENTIA ALZHEIMER'S TYPE
     Dosage: 10 MG BID PO
     Route: 048
     Dates: start: 20050326, end: 20051116
  2. NAMENDA [Suspect]
     Indication: DEMENTIA ALZHEIMER'S TYPE
     Dosage: 5 MG QD PO
     Route: 048
     Dates: start: 20050301, end: 20050307
  3. NAMENDA [Suspect]
     Indication: DEMENTIA ALZHEIMER'S TYPE
     Dosage: 5 MG BID PO
     Route: 048
     Dates: start: 20050308, end: 20050314
  4. NAMENDA [Suspect]
     Indication: DEMENTIA ALZHEIMER'S TYPE
     Dosage: 15 MG QD PO
     Route: 048
     Dates: start: 20050315, end: 20050321
  5. DEPAKOTE [Suspect]
     Indication: ANXIETY
     Dosage: 250 MG TID
     Dates: end: 20051115
  6. DEPAKOTE [Suspect]
     Indication: RESTLESSNESS
     Dosage: 250 MG TID
     Dates: end: 20051115
  7. DEPAKOTE [Suspect]
     Indication: ANXIETY
     Dosage: 250 MG BID
     Dates: start: 20051116, end: 20051128
  8. DEPAKOTE [Suspect]
     Indication: RESTLESSNESS
     Dosage: 250 MG BID
     Dates: start: 20051116, end: 20051128
  9. ARICEPT [Concomitant]
  10. ZOLOFT [Concomitant]
  11. EVISTA [Concomitant]
  12. VYTORIN [Concomitant]
  13. RISPERDAL [Concomitant]

REACTIONS (1)
  - GAIT DISTURBANCE [None]
